FAERS Safety Report 25990860 (Version 1)
Quarter: 2025Q4

REPORT INFORMATION
  Report Type: Spontaneous
  Country: CA (occurrence: CA)
  Receive Date: 20251103
  Receipt Date: 20251103
  Transmission Date: 20260117
  Serious: Yes (Hospitalization, Other)
  Sender: GLAXOSMITHKLINE
  Company Number: CA-GLAXOSMITHKLINE-CA2025AMR140507

PATIENT
  Age: 4 Day
  Sex: Female

DRUGS (1)
  1. LAMICTAL [Suspect]
     Active Substance: LAMOTRIGINE
     Indication: Product used for unknown indication
     Dosage: 200 MG, BID

REACTIONS (3)
  - Apnoea [Recovering/Resolving]
  - Asthenia [Recovering/Resolving]
  - Maternal exposure during breast feeding [Recovering/Resolving]
